FAERS Safety Report 9337093 (Version 1)
Quarter: 2013Q2

REPORT INFORMATION
  Report Type: Spontaneous
  Country: GB (occurrence: GB)
  Receive Date: 20130607
  Receipt Date: 20130607
  Transmission Date: 20140414
  Serious: Yes (Death)
  Sender: FDA-Public Use
  Company Number: GB-009507513-1210GBR009947

PATIENT
  Age: 36 Year
  Sex: Female

DRUGS (1)
  1. DEXAMETHASONE [Suspect]
     Indication: CONNECTIVE TISSUE DISORDER
     Route: 048

REACTIONS (1)
  - Exposure during pregnancy [Fatal]
